FAERS Safety Report 4555445-6 (Version None)
Quarter: 2004Q4

REPORT INFORMATION
  Report Type: 
  Country: None (occurrence: None)
  Receive Date: 20041220
  Receipt Date: 20040202
  Transmission Date: 20050328
  Serious: Yes (Death)
  Sender: FDA-Public Use
  Company Number: NSADSS2003015625

PATIENT
  Age: 56 Year
  Sex: Male
  Weight: 77.1115 kg

DRUGS (3)
  1. RETAVASE (RETEPLASE) LYOPHILIZED POWDER [Suspect]
     Indication: CEREBROVASCULAR ACCIDENT
     Dosage: SEE IMAGE
     Route: 041
     Dates: start: 20030313, end: 20030313
  2. RETAVASE (RETEPLASE) LYOPHILIZED POWDER [Suspect]
     Indication: CEREBROVASCULAR ACCIDENT
     Dosage: SEE IMAGE
     Route: 041
     Dates: start: 20030313, end: 20030313
  3. RETAVASE (RETEPLASE) LYOPHILIZED POWDER [Suspect]
     Indication: CEREBROVASCULAR ACCIDENT
     Dosage: SEE IMAGE
     Route: 041
     Dates: start: 20030313, end: 20030313

REACTIONS (1)
  - HAEMORRHAGE INTRACRANIAL [None]
